FAERS Safety Report 21448085 (Version 2)
Quarter: 2023Q1

REPORT INFORMATION
  Report Type: Spontaneous
  Country: JP (occurrence: JP)
  Receive Date: 20221012
  Receipt Date: 20230214
  Transmission Date: 20230418
  Serious: Yes (Death, Other)
  Sender: FDA-Public Use
  Company Number: JP-MSD-M2022-35059

PATIENT
  Age: 63 Year
  Sex: Male

DRUGS (8)
  1. KEYTRUDA [Suspect]
     Active Substance: PEMBROLIZUMAB
     Indication: Lip and/or oral cavity cancer
     Dosage: 200 MILLIGRAM, Q3W
     Route: 041
     Dates: start: 20210402
  2. KEYTRUDA [Suspect]
     Active Substance: PEMBROLIZUMAB
     Dosage: 200 MILLIGRAM, Q3W
     Route: 041
     Dates: start: 2022, end: 2022
  3. CISPLATIN [Suspect]
     Active Substance: CISPLATIN
     Indication: Lip and/or oral cavity cancer
     Dosage: UNK
     Route: 051
  4. CISPLATIN [Suspect]
     Active Substance: CISPLATIN
     Dosage: UNK
     Route: 041
  5. FLUOROURACIL [Suspect]
     Active Substance: FLUOROURACIL
     Indication: Lip and/or oral cavity cancer
     Dosage: UNK UNK, Q3W
     Route: 065
  6. FLUOROURACIL [Suspect]
     Active Substance: FLUOROURACIL
     Dosage: 1000 MILLIGRAM/SQ. METER, Q3W
     Route: 065
     Dates: end: 2022
  7. PACLITAXEL [Concomitant]
     Active Substance: PACLITAXEL
     Indication: Lip and/or oral cavity cancer
     Dosage: UNK
     Route: 065
  8. CETUXIMAB [Concomitant]
     Active Substance: CETUXIMAB
     Indication: Lip and/or oral cavity cancer
     Dosage: UNK
     Route: 065

REACTIONS (1)
  - Malignant neoplasm progression [Fatal]

NARRATIVE: CASE EVENT DATE: 20220624
